FAERS Safety Report 24388432 (Version 1)
Quarter: 2024Q4

REPORT INFORMATION
  Report Type: Spontaneous
  Country: US (occurrence: US)
  Receive Date: 20241002
  Receipt Date: 20241002
  Transmission Date: 20250114
  Serious: Yes (Death, Life-Threatening, Other)
  Sender: AMGEN
  Company Number: US-AMGEN-USASP2024192541

PATIENT
  Age: 30 Year
  Sex: Male

DRUGS (1)
  1. AVACOPAN [Suspect]
     Active Substance: AVACOPAN
     Indication: Granulomatosis with polyangiitis
     Dosage: UNK
     Route: 065

REACTIONS (9)
  - Shock [Fatal]
  - Cardiac arrest [Unknown]
  - Hypoxia [Unknown]
  - Pneumonia staphylococcal [Unknown]
  - Bronchopleural fistula [Unknown]
  - Pulmonary alveolar haemorrhage [Unknown]
  - Cardiac failure congestive [Unknown]
  - Skin mass [Unknown]
  - Skin ulcer [Unknown]
